FAERS Safety Report 17097757 (Version 1)
Quarter: 2019Q4

REPORT INFORMATION
  Report Type: Spontaneous
  Country: US (occurrence: US)
  Receive Date: 20191105
  Receipt Date: 20191105
  Transmission Date: 20200122
  Serious: Yes (Death)
  Sender: FDA-Public Use
  Company Number: None

PATIENT
  Age: 57 Year
  Sex: Female

DRUGS (2)
  1. KEYTRUDA [Concomitant]
     Active Substance: PEMBROLIZUMAB
  2. ALIMTA [Suspect]
     Active Substance: PEMETREXED DISODIUM
     Dosage: ?          OTHER FREQUENCY:OTHER;?
     Route: 042
     Dates: start: 20190820, end: 20190906

REACTIONS (1)
  - Death [None]
